FAERS Safety Report 4280864-5 (Version None)
Quarter: 2004Q1

REPORT INFORMATION
  Report Type: 
  Country: None (occurrence: None)
  Receive Date: 20040127
  Receipt Date: 20040116
  Transmission Date: 20041129
  Serious: Yes (Disabling)
  Sender: FDA-Public Use
  Company Number: HQWYE430716JAN04

PATIENT
  Age: 62 Year
  Sex: Female

DRUGS (4)
  1. CORDARONE [Suspect]
     Indication: VENTRICULAR TACHYCARDIA
     Dosage: 200 MG 1X PER 1 DAY ORAL
     Route: 048
     Dates: start: 20020617
  2. CORDARONE [Suspect]
     Dosage: 100 MG 1X PER 1 DAY ORAL
     Route: 048
     Dates: end: 20031217
  3. SIMVASTATIN [Concomitant]
  4. THYROXINE ^COX^ (LEVOTHYROXINE SODIUM) [Concomitant]

REACTIONS (3)
  - FATIGUE [None]
  - HOT FLUSH [None]
  - NEUROMYOPATHY [None]
